FAERS Safety Report 7404268-9 (Version None)
Quarter: 2011Q1

REPORT INFORMATION
  Report Type: 
  Country: None (occurrence: None)
  Receive Date: 20110330
  Receipt Date: 20110315
  Transmission Date: 20110831
  Serious: Yes (Death, Congenital Anomaly)
  Sender: FDA-Public Use
  Company Number: FK201100528

PATIENT

DRUGS (9)
  1. DOXORUBICIN (MANUFACTURER UNKNOWN) (DOXORUBICIN HYDROCHLORIDE) (DOXORU [Suspect]
     Indication: BURKITT'S LYMPHOMA
     Dosage: TRANSPLACENTAL
     Route: 064
  2. VINCRISTINE [Suspect]
     Indication: BURKITT'S LYMPHOMA
     Dosage: TRANSPLACENTAL
     Route: 064
  3. CYCLOPHOSPHAMIDE [Suspect]
     Indication: BURKITT'S LYMPHOMA
     Dosage: TRANSPLACENTAL
     Route: 064
  4. CYTARABINE [Suspect]
     Indication: BURKITT'S LYMPHOMA
     Dosage: TRANSPLACENTAL
     Route: 064
  5. ETOPOSIDE [Suspect]
     Indication: BURKITT'S LYMPHOMA
     Dosage: TRANSPLACENTAL
     Route: 064
  6. RITUXIMAB (RITUXIMAB) (RITUXIMAB) [Suspect]
     Indication: BURKITT'S LYMPHOMA
     Dosage: TRANSPLACENTAL
     Route: 064
  7. IFOSFAMIDE [Suspect]
     Indication: BURKITT'S LYMPHOMA
     Dosage: TRANSPLACENTAL
     Route: 064
  8. MESNA [Suspect]
     Indication: BURKITT'S LYMPHOMA
     Dosage: TRANSPLACENTAL
     Route: 064
  9. ALLOPURINOL [Concomitant]

REACTIONS (5)
  - FOETAL GROWTH RESTRICTION [None]
  - AMNIOTIC FLUID VOLUME DECREASED [None]
  - STILLBIRTH [None]
  - MATERNAL DRUGS AFFECTING FOETUS [None]
  - PREMATURE BABY [None]
